FAERS Safety Report 24771494 (Version 1)
Quarter: 2024Q4

REPORT INFORMATION
  Report Type: Report from Study
  Country: CO (occurrence: CO)
  Receive Date: 20241224
  Receipt Date: 20241224
  Transmission Date: 20250114
  Serious: Yes (Other)
  Sender: UCB
  Company Number: CO-UCBSA-2024067100

PATIENT
  Age: 66 Year
  Sex: Female

DRUGS (9)
  1. ROTIGOTINE [Suspect]
     Active Substance: ROTIGOTINE
     Indication: Parkinson^s disease
     Dosage: 2 MILLIGRAM, ONCE DAILY (QD)
     Route: 062
     Dates: start: 20241119, end: 20241126
  2. ROTIGOTINE [Suspect]
     Active Substance: ROTIGOTINE
     Dosage: 04 MILLIGRAM, ONCE DAILY (QD)
     Route: 062
     Dates: start: 20241127, end: 20241202
  3. ROTIGOTINE [Suspect]
     Active Substance: ROTIGOTINE
     Dosage: 06 MILLIGRAM, ONCE DAILY (QD)
     Route: 062
     Dates: start: 20241203, end: 20241205
  4. ROTIGOTINE [Suspect]
     Active Substance: ROTIGOTINE
     Dosage: 6 MILLIGRAM, ONCE DAILY (QD)
     Route: 062
     Dates: start: 20241211
  5. ESOMEPRAZOLE [Concomitant]
     Active Substance: ESOMEPRAZOLE
     Indication: Product used for unknown indication
  6. IRBESARTAN [Concomitant]
     Active Substance: IRBESARTAN
     Indication: Product used for unknown indication
  7. QUETIAPINE [Concomitant]
     Active Substance: QUETIAPINE
     Indication: Product used for unknown indication
  8. MILPAX [SODIUM ALGINATE;SODIUM BICARBONATE] [Concomitant]
     Indication: Product used for unknown indication
  9. METOPROLOL [Concomitant]
     Active Substance: METOPROLOL
     Indication: Product used for unknown indication

REACTIONS (4)
  - Choking [Not Recovered/Not Resolved]
  - Heart rate decreased [Not Recovered/Not Resolved]
  - Asthenia [Not Recovered/Not Resolved]
  - Off label use [Unknown]

NARRATIVE: CASE EVENT DATE: 20241119
